FAERS Safety Report 7166222-4 (Version None)
Quarter: 2010Q4

REPORT INFORMATION
  Report Type: 
  Country: None (occurrence: None)
  Receive Date: 20101216
  Receipt Date: 20101213
  Transmission Date: 20110411
  Serious: Yes (Death, Hospitalization)
  Sender: FDA-Public Use
  Company Number: US-SANOFI-AVENTIS-2010SA067661

PATIENT
  Age: 47 Year
  Sex: Male

DRUGS (10)
  1. JEVTANA KIT [Suspect]
     Indication: PROSTATE CANCER METASTATIC
     Route: 041
     Dates: start: 20100924, end: 20100924
  2. JEVTANA KIT [Suspect]
     Route: 041
     Dates: start: 20101018, end: 20101018
  3. OXYCONTIN [Concomitant]
     Route: 065
  4. OXYCODONE [Concomitant]
     Route: 065
  5. AZOR [Concomitant]
     Dosage: 5/20 MG
     Route: 065
  6. AMBIEN [Concomitant]
     Route: 048
  7. FESOTERODINE [Concomitant]
     Route: 065
  8. MS CONTIN [Concomitant]
     Indication: PAIN
  9. ZOFRAN [Concomitant]
  10. COMPAZINE [Concomitant]

REACTIONS (11)
  - ASCITES [None]
  - ATRIAL FIBRILLATION [None]
  - CLOSTRIDIUM DIFFICILE COLITIS [None]
  - DEATH [None]
  - DIARRHOEA [None]
  - HEPATIC FAILURE [None]
  - HYPOTENSION [None]
  - HYPOVOLAEMIA [None]
  - NEUTROPENIA [None]
  - SEPSIS [None]
  - TACHYCARDIA [None]
